FAERS Safety Report 5041220-5 (Version None)
Quarter: 2006Q3

REPORT INFORMATION
  Report Type: 
  Country: None (occurrence: None)
  Receive Date: 20060703
  Receipt Date: 20060607
  Transmission Date: 20061208
  Serious: Yes (Death, Life-Threatening, Hospitalization)
  Sender: FDA-Public Use
  Company Number: FRPFM-E-20060065

PATIENT
  Age: 51 Year
  Sex: Male

DRUGS (4)
  1. CIBLOR [Suspect]
     Indication: ORCHITIS
     Route: 048
     Dates: start: 20060301, end: 20060321
  2. LAMICTAL [Suspect]
     Route: 048
     Dates: start: 20060209, end: 20060328
  3. CIFLOX [Suspect]
     Indication: ORCHITIS
     Route: 048
     Dates: start: 20060301, end: 20060321
  4. PREVISCAN [Suspect]
     Indication: PHLEBITIS
     Dosage: 10MG AT NIGHT
     Route: 048
     Dates: start: 20060101, end: 20060328

REACTIONS (9)
  - CEREBRAL HAEMORRHAGE [None]
  - COMA [None]
  - DRUG RASH WITH EOSINOPHILIA AND SYSTEMIC SYMPTOMS [None]
  - PROTHROMBIN LEVEL DECREASED [None]
  - PURPURA [None]
  - PYREXIA [None]
  - RASH MACULO-PAPULAR [None]
  - SHOCK [None]
  - TOXIC SKIN ERUPTION [None]
